FAERS Safety Report 12293539 (Version 1)
Quarter: 2016Q2

REPORT INFORMATION
  Report Type: Spontaneous
  Country: GB (occurrence: GB)
  Receive Date: 20160421
  Receipt Date: 20160421
  Transmission Date: 20160815
  Serious: Yes (Other)
  Sender: FDA-Public Use
  Company Number: GB-PFIZER INC-2016223280

PATIENT
  Age: 50 Year
  Sex: Female

DRUGS (1)
  1. CHAMPIX [Suspect]
     Active Substance: VARENICLINE TARTRATE
     Indication: SMOKING CESSATION THERAPY
     Dosage: 500 UG, 1X/DAY
     Route: 048
     Dates: start: 20160406, end: 20160408

REACTIONS (4)
  - Paraesthesia oral [Recovering/Resolving]
  - Swelling face [Recovering/Resolving]
  - Anaphylactoid reaction [Recovering/Resolving]
  - Urticaria [Recovering/Resolving]

NARRATIVE: CASE EVENT DATE: 20160406
